FAERS Safety Report 7344288-6 (Version None)
Quarter: 2011Q1

REPORT INFORMATION
  Report Type: 
  Country: None (occurrence: None)
  Receive Date: 20110310
  Receipt Date: 20101018
  Transmission Date: 20110831
  Serious: No
  Sender: FDA-Public Use
  Company Number: A0887303A

PATIENT

DRUGS (1)
  1. NICORETTE [Suspect]

REACTIONS (1)
  - DRUG ADMINISTRATION ERROR [None]
